FAERS Safety Report 5065111-9 (Version None)
Quarter: 2006Q3

REPORT INFORMATION
  Report Type: 
  Country: None (occurrence: None)
  Receive Date: 20060727
  Receipt Date: 20060727
  Transmission Date: 20061208
  Serious: Yes (Other)
  Sender: FDA-Public Use
  Company Number: None

PATIENT
  Age: 54 Year
  Sex: Female
  Weight: 71.6683 kg

DRUGS (3)
  1. EFFEXOR [Suspect]
     Indication: DEPRESSION
     Dates: start: 19990401, end: 20030701
  2. EFFEXOR [Suspect]
     Indication: MARITAL PROBLEM
     Dates: start: 19990401, end: 20030701
  3. GENERIC MIGRAINE INHALER   ONE SQUIRT UP EACH NOSTRIL [Suspect]
     Indication: MIGRAINE
     Dates: start: 20010901, end: 20030401

REACTIONS (14)
  - ASTHENIA [None]
  - DEREALISATION [None]
  - DRUG INTERACTION [None]
  - FEAR [None]
  - FEELING ABNORMAL [None]
  - HEART RATE INCREASED [None]
  - HYPERHIDROSIS [None]
  - IMPAIRED DRIVING ABILITY [None]
  - MALAISE [None]
  - MOVEMENT DISORDER [None]
  - NAUSEA [None]
  - PSYCHOMOTOR HYPERACTIVITY [None]
  - VISION BLURRED [None]
  - WRONG DRUG ADMINISTERED [None]
